FAERS Safety Report 9813329 (Version 2)
Quarter: 2014Q1

REPORT INFORMATION
  Report Type: Spontaneous
  Country: US (occurrence: US)
  Receive Date: 20140113
  Receipt Date: 20140121
  Transmission Date: 20141002
  Serious: Yes (Other)
  Sender: FDA-Public Use
  Company Number: US-JNJFOC-20140103134

PATIENT
  Age: 56 Year
  Sex: Female

DRUGS (3)
  1. DURAGESIC [Suspect]
     Indication: CANCER PAIN
     Route: 062
  2. DURAGESIC [Suspect]
     Indication: CANCER PAIN
     Route: 062
     Dates: start: 2012
  3. POTASSIUM [Concomitant]
     Indication: PRODUCT USED FOR UNKNOWN INDICATION
     Route: 065

REACTIONS (5)
  - Malignant neoplasm progression [Not Recovered/Not Resolved]
  - Cancer pain [Not Recovered/Not Resolved]
  - Abnormal loss of weight [Not Recovered/Not Resolved]
  - Drug ineffective [Not Recovered/Not Resolved]
  - Drug dose omission [Recovered/Resolved]
